FAERS Safety Report 20884331 (Version 2)
Quarter: 2022Q3

REPORT INFORMATION
  Report Type: Spontaneous
  Country: US (occurrence: US)
  Receive Date: 20220527
  Receipt Date: 20220810
  Transmission Date: 20221027
  Serious: No
  Sender: FDA-Public Use
  Company Number: US-PFIZER INC-202200748994

PATIENT
  Age: 75 Year
  Sex: Female
  Weight: 55.34 kg

DRUGS (2)
  1. PAXLOVID [Suspect]
     Active Substance: NIRMATRELVIR\RITONAVIR
     Indication: COVID-19 treatment
     Dosage: TAKES 3 TWICE A DAY
     Dates: start: 20220520
  2. CARBIDOPA\LEVODOPA [Concomitant]
     Active Substance: CARBIDOPA\LEVODOPA
     Indication: Parkinson^s disease
     Dosage: UNK
     Dates: start: 2017

REACTIONS (3)
  - Dyspnoea [Not Recovered/Not Resolved]
  - Catarrh [Not Recovered/Not Resolved]
  - Nasal dryness [Unknown]

NARRATIVE: CASE EVENT DATE: 20220501
